FAERS Safety Report 12316323 (Version 1)
Quarter: 2016Q2

REPORT INFORMATION
  Report Type: Spontaneous
  Country: CH (occurrence: CH)
  Receive Date: 20160428
  Receipt Date: 20160428
  Transmission Date: 20160815
  Serious: Yes (Hospitalization)
  Sender: FDA-Public Use
  Company Number: PHHY2016CH054756

PATIENT
  Age: 95 Year
  Sex: Female
  Weight: 75 kg

DRUGS (15)
  1. ATORVASTATIN [Interacting]
     Active Substance: ATORVASTATIN
     Dosage: 40 MG, QD
     Route: 048
  2. CLEXANE [Interacting]
     Active Substance: ENOXAPARIN SODIUM
     Indication: TRANSIENT ISCHAEMIC ATTACK
     Dosage: 80 MG, BID
     Route: 058
     Dates: end: 20160308
  3. FOLIC ACID. [Concomitant]
     Active Substance: FOLIC ACID
     Indication: PRODUCT USED FOR UNKNOWN INDICATION
     Dosage: 5 MG, QD
     Route: 048
     Dates: start: 20160126
  4. VI-DE 3 [Concomitant]
     Active Substance: CHOLECALCIFEROL
     Indication: PRODUCT USED FOR UNKNOWN INDICATION
     Dosage: 800 IU, QD
     Route: 065
  5. KLACID//CLARITHROMYCIN [Interacting]
     Active Substance: CLARITHROMYCIN
     Indication: PNEUMONIA LEGIONELLA
     Dosage: 500 MG, BID
     Route: 048
     Dates: start: 20160125, end: 20160126
  6. AUGMENTIN [Concomitant]
     Active Substance: AMOXICILLIN\CLAVULANATE POTASSIUM
     Indication: PRODUCT USED FOR UNKNOWN INDICATION
     Dosage: 1.2 G, TID
     Route: 041
     Dates: start: 20160125, end: 20160130
  7. SINTROM [Interacting]
     Active Substance: ACENOCOUMAROL
     Dosage: UNK
     Route: 048
  8. ELIQUIS [Interacting]
     Active Substance: APIXABAN
     Indication: TRANSIENT ISCHAEMIC ATTACK
     Dosage: 5 MG, BID
     Route: 048
     Dates: start: 201511, end: 20160126
  9. LASIX [Concomitant]
     Active Substance: FUROSEMIDE
     Indication: CARDIAC FAILURE
     Dosage: 10 MG, TID
     Route: 048
     Dates: start: 20160125, end: 20160129
  10. TORASEMIDE [Concomitant]
     Active Substance: TORSEMIDE
     Indication: PRODUCT USED FOR UNKNOWN INDICATION
     Route: 048
     Dates: start: 20160130
  11. AUGMENTIN [Concomitant]
     Active Substance: AMOXICILLIN\CLAVULANATE POTASSIUM
     Dosage: UNK
     Route: 048
     Dates: start: 20160129, end: 20160130
  12. ZYLORIC [Concomitant]
     Active Substance: ALLOPURINOL
     Indication: PRODUCT USED FOR UNKNOWN INDICATION
     Dosage: 100 MG, QD
     Route: 048
     Dates: end: 20160405
  13. SINTROM [Interacting]
     Active Substance: ACENOCOUMAROL
     Indication: TRANSIENT ISCHAEMIC ATTACK
     Dosage: UNK
     Route: 048
     Dates: end: 20160212
  14. ATORVASTATIN [Suspect]
     Active Substance: ATORVASTATIN
     Indication: TRANSIENT ISCHAEMIC ATTACK
     Dosage: 80 MG, QD
     Route: 048
     Dates: start: 201511
  15. LYRICA [Concomitant]
     Active Substance: PREGABALIN
     Indication: POST HERPETIC NEURALGIA
     Dosage: 75 MG, BID
     Route: 048

REACTIONS (3)
  - Catheter site haemorrhage [Recovered/Resolved]
  - Haematuria [Recovered/Resolved]
  - Muscle haemorrhage [Recovered/Resolved]

NARRATIVE: CASE EVENT DATE: 20160126
